FAERS Safety Report 6008222-3 (Version None)
Quarter: 2008Q4

REPORT INFORMATION
  Report Type: 
  Country: None (occurrence: None)
  Receive Date: 20081217
  Receipt Date: 20080729
  Transmission Date: 20090506
  Serious: No
  Sender: FDA-Public Use
  Company Number: US-ASTRAZENECA-2008UW15578

PATIENT
  Age: 68 Year
  Sex: Female
  Weight: 69.4 kg

DRUGS (3)
  1. CRESTOR [Suspect]
     Indication: HYPERCHOLESTEROLAEMIA
     Route: 048
     Dates: start: 20080101
  2. ATIVAN [Concomitant]
  3. MEVACOR [Concomitant]

REACTIONS (2)
  - BREAST CYST [None]
  - NIGHT SWEATS [None]
